FAERS Safety Report 25400986 (Version 1)
Quarter: 2025Q2

REPORT INFORMATION
  Report Type: Spontaneous
  Country: NO (occurrence: NO)
  Receive Date: 20250605
  Receipt Date: 20250605
  Transmission Date: 20250716
  Serious: Yes (Other)
  Sender: ANI
  Company Number: NO-ANIPHARMA-2025-NO-000006

PATIENT
  Age: 49 Year
  Sex: Female
  Weight: 68 kg

DRUGS (6)
  1. CANDESARTAN CILEXETIL [Suspect]
     Active Substance: CANDESARTAN CILEXETIL
     Indication: Hypertension
     Route: 048
     Dates: start: 20250426, end: 20250502
  2. MAGNESIUM GLYCINATE [Concomitant]
     Active Substance: MAGNESIUM GLYCINATE
  3. OMEGA 3 [Concomitant]
     Active Substance: CAPSAICIN
  4. VITAMIN B [Concomitant]
     Active Substance: VITAMIN B
  5. CALCIUM [Concomitant]
     Active Substance: CALCIUM
  6. VITAMIN D [Concomitant]
     Active Substance: VITAMIN D NOS

REACTIONS (4)
  - Syncope [Recovered/Resolved]
  - Pelvic pain [Recovered/Resolved]
  - Abdominal pain lower [Recovered/Resolved]
  - Back pain [Recovered/Resolved]

NARRATIVE: CASE EVENT DATE: 20250428
